FAERS Safety Report 7867426-5 (Version None)
Quarter: 2011Q4

REPORT INFORMATION
  Report Type: 
  Country: None (occurrence: None)
  Receive Date: 20111028
  Receipt Date: 20111021
  Transmission Date: 20120403
  Serious: Yes (Hospitalization)
  Sender: FDA-Public Use
  Company Number: US-MERCK-1110USA03458

PATIENT
  Age: 46 Year
  Sex: Female

DRUGS (3)
  1. PRINIVIL [Suspect]
     Indication: HYPERTENSION
     Route: 048
  2. NIFEDIPINE [Concomitant]
     Indication: HYPERTENSION
     Route: 065
  3. CLONIDINE [Concomitant]
     Indication: HYPERTENSION
     Route: 065

REACTIONS (2)
  - HYPERTENSION [None]
  - DRUG INEFFECTIVE [None]
